FAERS Safety Report 13676868 (Version 1)
Quarter: 2017Q2

REPORT INFORMATION
  Report Type: Spontaneous
  Country: PT (occurrence: PT)
  Receive Date: 20170622
  Receipt Date: 20170622
  Transmission Date: 20170830
  Serious: Yes (Hospitalization)
  Sender: FDA-Public Use
  Company Number: PT-SUN PHARMACEUTICAL INDUSTRIES LTD-2015R1-95755

PATIENT
  Age: 16 Year
  Sex: Female

DRUGS (1)
  1. IRON SUCROSE [Suspect]
     Active Substance: IRON SUCROSE
     Indication: MICROCYTIC ANAEMIA
     Dosage: 100 MG, DAILY
     Route: 042

REACTIONS (3)
  - Thrombocytopenia [Recovered/Resolved]
  - Anisocytosis [Recovered/Resolved]
  - Microcytosis [Recovered/Resolved]
